FAERS Safety Report 7819458-0 (Version None)
Quarter: 2011Q4

REPORT INFORMATION
  Report Type: 
  Country: None (occurrence: None)
  Receive Date: 20111018
  Receipt Date: 20110623
  Transmission Date: 20120403
  Serious: No
  Sender: FDA-Public Use
  Company Number: US-ASTRAZENECA-2011SE38034

PATIENT
  Age: 12 Year
  Sex: Female

DRUGS (1)
  1. SYMBICORT [Suspect]
     Indication: ASTHMA
     Dosage: 160 MCGS TWO TIMES A DAY
     Route: 055
     Dates: start: 20110601, end: 20110601

REACTIONS (1)
  - DYSPNOEA [None]
